FAERS Safety Report 4757734-9 (Version None)
Quarter: 2005Q3

REPORT INFORMATION
  Report Type: 
  Country: None (occurrence: None)
  Receive Date: 20050831
  Receipt Date: 20050622
  Transmission Date: 20060218
  Serious: Yes (Other)
  Sender: FDA-Public Use
  Company Number: PHNU2005DE02350

PATIENT
  Age: 73 Year
  Sex: Female
  Weight: 50 kg

DRUGS (6)
  1. ZOMETA [Suspect]
     Indication: METASTASES TO BONE
     Dosage: 4 MG, QMO
     Route: 042
     Dates: start: 20030822, end: 20050225
  2. TAMOXIFEN CITRATE [Concomitant]
     Indication: BREAST CANCER
     Dosage: 20 MG, QD
     Route: 048
     Dates: start: 20030320, end: 20031212
  3. ARIMIDEX [Concomitant]
     Indication: BREAST CANCER
     Dosage: 1 DF, QD
     Route: 048
     Dates: start: 20031212
  4. FAVISTAN [Concomitant]
     Indication: HYPERTHYROIDISM
     Dosage: 5 MG, QD
     Route: 048
  5. OBSIDAN [Concomitant]
     Indication: HYPERTHYROIDISM
     Dosage: 12.5 MG, BID
     Route: 048
  6. TORSEMIDE [Concomitant]
     Indication: CARDIAC FAILURE
     Dosage: 10 MG, QD
     Route: 065

REACTIONS (4)
  - ASEPTIC NECROSIS BONE [None]
  - DENTAL TREATMENT [None]
  - OSTEOMYELITIS [None]
  - TOOTH EXTRACTION [None]
